FAERS Safety Report 6616980-X (Version None)
Quarter: 2010Q1

REPORT INFORMATION
  Report Type: 
  Country: None (occurrence: None)
  Receive Date: 20100301
  Receipt Date: 20100215
  Transmission Date: 20100710
  Serious: Yes (Hospitalization)
  Sender: FDA-Public Use
  Company Number: 8024814

PATIENT
  Sex: Female

DRUGS (5)
  1. XYZAL [Suspect]
     Indication: FOOD ALLERGY
     Dosage: (5 MG QD)
     Dates: start: 20031020, end: 20040428
  2. ZYRTEC [Suspect]
     Indication: FOOD ALLERGY
     Dates: start: 20030514, end: 20031019
  3. ZYRTEC [Suspect]
     Indication: FOOD ALLERGY
     Dates: start: 20040401
  4. CIPRALEX /01588501/ [Concomitant]
  5. SOBRIL [Concomitant]

REACTIONS (18)
  - ANXIETY [None]
  - CHILLS [None]
  - DRY MOUTH [None]
  - DYSGEUSIA [None]
  - EATING DISORDER [None]
  - FATIGUE [None]
  - FEAR OF EATING [None]
  - FEELING ABNORMAL [None]
  - HEART RATE INCREASED [None]
  - HEPATIC CYST [None]
  - HEPATIC STEATOSIS [None]
  - HYPERSENSITIVITY [None]
  - MALNUTRITION [None]
  - PANIC DISORDER [None]
  - PAROSMIA [None]
  - SUICIDAL IDEATION [None]
  - URINARY TRACT INFECTION [None]
  - WEIGHT DECREASED [None]
